FAERS Safety Report 25138339 (Version 1)
Quarter: 2025Q1

REPORT INFORMATION
  Report Type: Spontaneous
  Country: US (occurrence: US)
  Receive Date: 20250330
  Receipt Date: 20250330
  Transmission Date: 20250408
  Serious: Yes (Other)
  Sender: JOHNSON AND JOHNSON
  Company Number: US-JNJFOC-20250347325

PATIENT
  Age: 76 Year
  Sex: Female

DRUGS (4)
  1. TREMFYA [Suspect]
     Active Substance: GUSELKUMAB
     Indication: Psoriatic arthropathy
     Route: 065
     Dates: start: 202412
  2. TREMFYA [Suspect]
     Active Substance: GUSELKUMAB
     Indication: Rheumatoid arthritis
  3. DIFLUCAN [Concomitant]
     Active Substance: FLUCONAZOLE
     Indication: Urinary tract infection
  4. HYDROCODONE [Concomitant]
     Active Substance: HYDROCODONE
     Indication: Product used for unknown indication

REACTIONS (8)
  - Psoriatic arthropathy [Unknown]
  - Rheumatoid arthritis [Unknown]
  - Urinary tract infection [Recovering/Resolving]
  - Chronic obstructive pulmonary disease [Unknown]
  - Night sweats [Unknown]
  - Abdominal pain upper [Unknown]
  - Drug ineffective [Unknown]
  - Gastrointestinal pain [Unknown]

NARRATIVE: CASE EVENT DATE: 20250222
